FAERS Safety Report 5029413-4 (Version None)
Quarter: 2006Q2

REPORT INFORMATION
  Report Type: 
  Country: None (occurrence: None)
  Receive Date: 20060613
  Receipt Date: 20060531
  Transmission Date: 20061013
  Serious: Yes (Hospitalization)
  Sender: FDA-Public Use
  Company Number: 2006068328

PATIENT
  Age: 74 Year
  Sex: Male
  Weight: 40 kg

DRUGS (4)
  1. ZYVOX [Suspect]
     Indication: PNEUMONIA STAPHYLOCOCCAL
     Dosage: 1200 MG (600 MG, 2 IN 1 D), ORAL
     Route: 048
     Dates: start: 20060521, end: 20060521
  2. VANCOMYCIN HYDROCHLORIDE [Concomitant]
  3. FUNGARD (MICAFUGIN) [Concomitant]
  4. ITRACONAZOLE [Concomitant]

REACTIONS (4)
  - HALLUCINATIONS, MIXED [None]
  - HYPOAESTHESIA [None]
  - NERVE INJURY [None]
  - TINNITUS [None]
